FAERS Safety Report 9369392 (Version 2)
Quarter: 2013Q3

REPORT INFORMATION
  Report Type: Spontaneous
  Country: MX (occurrence: None)
  Receive Date: 20130621
  Receipt Date: 20130701
  Transmission Date: 20140515
  Serious: Yes (Other)
  Sender: FDA-Public Use
  Company Number: ENTC2013-0219

PATIENT
  Age: 76 Year
  Sex: Male

DRUGS (1)
  1. STALEVO [Suspect]
     Indication: PARKINSON^S DISEASE
     Dosage: 1 TABLET DAILY (50/12.5/200 MG)
     Route: 048
     Dates: start: 200912

REACTIONS (7)
  - Parkinson^s disease [None]
  - Aneurysm [None]
  - Petit mal epilepsy [None]
  - Petit mal epilepsy [None]
  - Disease progression [None]
  - Memory impairment [None]
  - Gait disturbance [None]
